FAERS Safety Report 16463963 (Version 1)
Quarter: 2019Q3

REPORT INFORMATION
  Report Type: Spontaneous
  Country: US (occurrence: US)
  Receive Date: 20190620
  Receipt Date: 20190620
  Transmission Date: 20191004
  Serious: Yes (Disabling)
  Sender: FDA-Public Use
  Company Number: None

PATIENT
  Age: 45 Year
  Sex: Female
  Weight: 91.8 kg

DRUGS (4)
  1. NEUTROGENA BEACH DEFENSE WATER PLUS SUN PROTECTION SUNSCREEN BROAD SPECTRUM SPF 70 [Suspect]
     Active Substance: AVOBENZONE\HOMOSALATE\OCTISALATE\OCTOCRYLENE\OXYBENZONE
     Indication: PROPHYLAXIS
     Dates: start: 20190528, end: 20190603
  2. NEUTROGENA BEACH DEFENSE WATER PLUS SUN PROTECTION SUNSCREEN BROAD SPECTRUM SPF 70 [Suspect]
     Active Substance: AVOBENZONE\HOMOSALATE\OCTISALATE\OCTOCRYLENE\OXYBENZONE
     Indication: SUNBURN
     Dates: start: 20190528, end: 20190603
  3. MULTIVITAMIN [Concomitant]
     Active Substance: VITAMINS
  4. OTC 24 HOUR ALLERGY CAPLETS [Concomitant]

REACTIONS (7)
  - Hypersensitivity [None]
  - Urine odour abnormal [None]
  - Pruritus [None]
  - Urticaria [None]
  - Abnormal weight gain [None]
  - Product formulation issue [None]
  - Abdominal distension [None]

NARRATIVE: CASE EVENT DATE: 20190529
